FAERS Safety Report 5044541-5 (Version None)
Quarter: 2006Q2

REPORT INFORMATION
  Report Type: 
  Country: None (occurrence: None)
  Receive Date: 20060629
  Receipt Date: 20060619
  Transmission Date: 20061013
  Serious: Yes (Hospitalization)
  Sender: FDA-Public Use
  Company Number: L06-JPN-02579-01

PATIENT
  Age: 10 Year
  Sex: Female

DRUGS (6)
  1. CARBAMAZEPINE [Suspect]
     Indication: MYOCLONUS
     Dates: start: 19960101, end: 19960101
  2. ZONISAMIDE [Suspect]
     Indication: MYOCLONUS
     Dates: start: 19960101, end: 19960101
  3. VALPROIC ACID [Suspect]
     Indication: EPILEPSY
     Dates: start: 19951001
  4. VALPROIC ACID [Suspect]
     Indication: GRAND MAL CONVULSION
     Dates: start: 19951001
  5. VALPROIC ACID [Suspect]
     Indication: EPILEPSY
     Dosage: 1000 MG DAILY
     Dates: end: 19961201
  6. VALPROIC ACID [Suspect]
     Indication: GRAND MAL CONVULSION
     Dosage: 1000 MG DAILY
     Dates: end: 19961201

REACTIONS (6)
  - CHEST DISCOMFORT [None]
  - DROP ATTACKS [None]
  - ELECTROENCEPHALOGRAM ABNORMAL [None]
  - GRAND MAL CONVULSION [None]
  - MYOCLONUS [None]
  - SOMNOLENCE [None]
